FAERS Safety Report 6774095-4 (Version None)
Quarter: 2010Q2

REPORT INFORMATION
  Report Type: 
  Country: None (occurrence: None)
  Receive Date: 20100615
  Receipt Date: 20100615
  Transmission Date: 20101027
  Serious: Yes (Other)
  Sender: FDA-Public Use
  Company Number: None

PATIENT

DRUGS (2)
  1. LOVENOX [Suspect]
     Indication: HIP FRACTURE
     Dosage: 40MG/0.4ML DAILY SQ
     Route: 058
  2. LOVENOX [Suspect]
     Indication: THROMBOSIS PROPHYLAXIS
     Dosage: 40MG/0.4ML DAILY SQ
     Route: 058

REACTIONS (3)
  - DEVICE FAILURE [None]
  - INJURY ASSOCIATED WITH DEVICE [None]
  - SYRINGE ISSUE [None]
